FAERS Safety Report 6566153-4 (Version None)
Quarter: 2010Q1

REPORT INFORMATION
  Report Type: 
  Country: None (occurrence: None)
  Receive Date: 20100202
  Receipt Date: 20100126
  Transmission Date: 20100710
  Serious: Yes (Death)
  Sender: FDA-Public Use
  Company Number: US-BAYER-201012081NA

PATIENT
  Age: 55 Year
  Sex: Male

DRUGS (11)
  1. BETASERON [Suspect]
     Indication: MULTIPLE SCLEROSIS
     Dosage: TOTAL DAILY DOSE: 8 MIU
     Route: 058
     Dates: start: 19940210
  2. AMANTADINE HCL [Concomitant]
  3. AMARYL [Concomitant]
  4. AMBIEN [Concomitant]
  5. BABY ASPIRIN [Concomitant]
  6. BACLOFEN [Concomitant]
  7. GABAPENTIN [Concomitant]
  8. GLUCERNA [Concomitant]
  9. LANTUS [Concomitant]
  10. LEXAPRO [Concomitant]
  11. LISINOPRIL [Concomitant]

REACTIONS (1)
  - DEATH [None]
